FAERS Safety Report 5562914-9 (Version None)
Quarter: 2007Q4

REPORT INFORMATION
  Report Type: 
  Country: None (occurrence: None)
  Receive Date: 20071212
  Receipt Date: 20071212
  Transmission Date: 20080405
  Serious: No
  Sender: FDA-Public Use
  Company Number: None

PATIENT
  Age: 60 Year
  Sex: Male

DRUGS (1)
  1. INSULIN [Suspect]
     Dosage: 52UNITS  EVERY DAY  SQ
     Route: 058
     Dates: start: 20070504

REACTIONS (1)
  - HYPOGLYCAEMIA [None]
